FAERS Safety Report 7468324-1 (Version None)
Quarter: 2011Q2

REPORT INFORMATION
  Report Type: 
  Country: None (occurrence: None)
  Receive Date: 20110509
  Receipt Date: 20110503
  Transmission Date: 20111010
  Serious: Yes (Disabling, Other)
  Sender: FDA-Public Use
  Company Number: US-GENENTECH-318023

PATIENT
  Sex: Female

DRUGS (3)
  1. PREDNISONE [Concomitant]
     Indication: PRODUCT USED FOR UNKNOWN INDICATION
  2. PLACEBO [Suspect]
     Indication: ASTHMA
     Dosage: 225 MG, Q4W
     Route: 058
     Dates: start: 20101210
  3. XOLAIR [Suspect]
     Indication: ASTHMA
     Dosage: 225 MG, Q4W
     Route: 058
     Dates: start: 20101210

REACTIONS (1)
  - ASTHMA [None]
